FAERS Safety Report 7707372-0 (Version None)
Quarter: 2011Q3

REPORT INFORMATION
  Report Type: 
  Country: None (occurrence: None)
  Receive Date: 20110824
  Receipt Date: 20110817
  Transmission Date: 20111222
  Serious: Yes (Death, Hospitalization)
  Sender: FDA-Public Use
  Company Number: US-B.I. PHARMACEUTICALS,INC./RIDGEFIELD-2011-DE-04629GD

PATIENT
  Age: 88 Year
  Sex: Female

DRUGS (1)
  1. AGGRENOX [Suspect]
     Indication: CEREBROVASCULAR ACCIDENT
     Dosage: 1 CAPSULE BID
     Route: 048

REACTIONS (9)
  - TACHYCARDIA [None]
  - STAPHYLOCOCCAL INFECTION [None]
  - HAEMODYNAMIC INSTABILITY [None]
  - DEATH [None]
  - HAEMATOCHEZIA [None]
  - HYPOTENSION [None]
  - UNRESPONSIVE TO STIMULI [None]
  - CANDIDA TEST POSITIVE [None]
  - PERFORATED ULCER [None]
